FAERS Safety Report 9360797 (Version 1)
Quarter: 2013Q2

REPORT INFORMATION
  Report Type: Spontaneous
  Country: US (occurrence: US)
  Receive Date: 20130621
  Receipt Date: 20130621
  Transmission Date: 20140414
  Serious: Yes (Other)
  Sender: FDA-Public Use
  Company Number: US-ELI_LILLY_AND_COMPANY-US201306004214

PATIENT
  Age: 59 Year
  Sex: Male

DRUGS (1)
  1. CIALIS [Suspect]
     Dosage: 5 MG, QD

REACTIONS (1)
  - Retinal tear [Recovered/Resolved]
